FAERS Safety Report 8532753-5 (Version None)
Quarter: 2012Q3

REPORT INFORMATION
  Report Type: 
  Country: None (occurrence: None)
  Receive Date: 20120724
  Receipt Date: 20120719
  Transmission Date: 20120928
  Serious: Yes (Hospitalization, Other)
  Sender: FDA-Public Use
  Company Number: PHHY2012DE062434

PATIENT
  Age: 59 Year
  Sex: Female
  Weight: 65 kg

DRUGS (2)
  1. FEMARA [Suspect]
     Dosage: UNK UKN, UNK
     Dates: start: 20090101
  2. ZOMETA [Suspect]
     Dosage: 4 MG, EVERY 6 MONTHS
     Route: 042
     Dates: start: 20090101

REACTIONS (14)
  - FAECAL INCONTINENCE [None]
  - HERPES SIMPLEX [None]
  - DEPRESSION [None]
  - PARALYSIS [None]
  - NERVE ROOT LESION [None]
  - PARESIS [None]
  - GUILLAIN-BARRE SYNDROME [None]
  - URINARY INCONTINENCE [None]
  - UTERINE LEIOMYOMA [None]
  - SENSORY LOSS [None]
  - MENTAL DISORDER [None]
  - NEUROPATHY PERIPHERAL [None]
  - PERITONEAL ADHESIONS [None]
  - RADICULITIS LUMBOSACRAL [None]
